FAERS Safety Report 10264687 (Version 1)
Quarter: 2014Q2

REPORT INFORMATION
  Report Type: Report from Study
  Country: CA (occurrence: CA)
  Receive Date: 20140627
  Receipt Date: 20140627
  Transmission Date: 20141212
  Serious: Yes (Hospitalization, Other)
  Sender: FDA-Public Use
  Company Number: CA-JNJFOC-20140615679

PATIENT
  Age: 68 Year
  Sex: Male
  Weight: 99.34 kg

DRUGS (1)
  1. REMICADE [Suspect]
     Indication: CROHN^S DISEASE
     Route: 042
     Dates: start: 2005

REACTIONS (6)
  - Knee arthroplasty [Unknown]
  - Fall [Unknown]
  - Ligament injury [Not Recovered/Not Resolved]
  - Rotator cuff syndrome [Unknown]
  - Ulcer haemorrhage [Unknown]
  - Haemoglobin decreased [Unknown]
